FAERS Safety Report 17587487 (Version 3)
Quarter: 2020Q2

REPORT INFORMATION
  Report Type: Report from Study
  Country: US (occurrence: US)
  Receive Date: 20200326
  Receipt Date: 20200508
  Transmission Date: 20200713
  Serious: Yes (Hospitalization)
  Sender: FDA-Public Use
  Company Number: US-ACTELION-A-NJ2020-203434

PATIENT
  Age: 74 Year
  Sex: Female
  Weight: 75.28 kg

DRUGS (2)
  1. XARELTO [Concomitant]
     Active Substance: RIVAROXABAN
  2. OPSUMIT [Suspect]
     Active Substance: MACITENTAN
     Indication: PULMONARY ARTERIAL HYPERTENSION
     Dosage: 10 MG, QD
     Route: 048
     Dates: start: 20171214

REACTIONS (2)
  - Colitis [Recovered/Resolved with Sequelae]
  - Intestinal obstruction [Unknown]

NARRATIVE: CASE EVENT DATE: 20200314
